FAERS Safety Report 22004002 (Version 1)
Quarter: 2023Q1

REPORT INFORMATION
  Report Type: Spontaneous
  Country: US (occurrence: None)
  Receive Date: 20230215
  Receipt Date: 20230215
  Transmission Date: 20230417
  Serious: Yes (Hospitalization)
  Sender: FDA-Public Use
  Company Number: None

PATIENT
  Age: 69 Year
  Sex: Female

DRUGS (1)
  1. IBRANCE [Suspect]
     Active Substance: PALBOCICLIB
     Indication: Breast cancer female
     Dosage: OTHER FREQUENCY : D 1-21  28 D CYCLE;?TAKE 1 TABLET (100MG) BY MOUTH 1 TIME A DAY ON DAYS 1 TO 21 OF
     Route: 048
     Dates: start: 20221005

REACTIONS (1)
  - Localised infection [None]

NARRATIVE: CASE EVENT DATE: 20230205
